FAERS Safety Report 26135224 (Version 1)
Quarter: 2025Q4

REPORT INFORMATION
  Report Type: Spontaneous
  Country: US (occurrence: US)
  Receive Date: 20251209
  Receipt Date: 20251209
  Transmission Date: 20260118
  Serious: No
  Sender: NOVEN
  Company Number: US-NOVEN PHARMACEUTICALS, INC.-2025-NOV-US000410

PATIENT
  Age: 65 Year
  Sex: Female

DRUGS (2)
  1. MINIVELLE [Suspect]
     Active Substance: ESTRADIOL
     Indication: Menopausal symptoms
     Dosage: 0.05 MG, UNKNOWN
     Route: 062
  2. PROGESTERONE [Concomitant]
     Active Substance: PROGESTERONE
     Indication: Menopausal symptoms
     Dosage: UNKNOWN
     Route: 048

REACTIONS (3)
  - Symptom recurrence [Recovered/Resolved]
  - Product dose omission issue [Unknown]
  - Intentional product use issue [Recovered/Resolved]
